FAERS Safety Report 8548234-9 (Version None)
Quarter: 2012Q3

REPORT INFORMATION
  Report Type: 
  Country: None (occurrence: None)
  Receive Date: 20120730
  Receipt Date: 20120720
  Transmission Date: 20120928
  Serious: No
  Sender: FDA-Public Use
  Company Number: US-009507513-1207USA008422

PATIENT

DRUGS (4)
  1. PATANASE [Concomitant]
  2. LISINOPRIL [Concomitant]
  3. ZOCOR [Suspect]
     Dosage: UNK
     Route: 048
     Dates: start: 20101101, end: 20120501
  4. LOVAZA [Concomitant]

REACTIONS (2)
  - ARTHROPATHY [None]
  - MYALGIA [None]
